FAERS Safety Report 8590825-3 (Version None)
Quarter: 2012Q3

REPORT INFORMATION
  Report Type: 
  Country: None (occurrence: None)
  Receive Date: 20120813
  Receipt Date: 20120809
  Transmission Date: 20120928
  Serious: Yes (Hospitalization, Other)
  Sender: FDA-Public Use
  Company Number: US-ROCHE-783522

PATIENT
  Sex: Female
  Weight: 49.94 kg

DRUGS (3)
  1. ACCUTANE [Suspect]
     Route: 065
  2. ACCUTANE [Suspect]
  3. ACCUTANE [Suspect]
     Indication: ACNE
     Route: 065
     Dates: start: 19930101, end: 19960101

REACTIONS (8)
  - INFLAMMATORY BOWEL DISEASE [None]
  - STRESS [None]
  - RASH [None]
  - LIP DRY [None]
  - BLOOD CHOLESTEROL INCREASED [None]
  - BLOOD TRIGLYCERIDES INCREASED [None]
  - DRY MOUTH [None]
  - COLITIS ULCERATIVE [None]
